FAERS Safety Report 8527381 (Version 10)
Quarter: 2013Q4

REPORT INFORMATION
  Report Type: Report from Study
  Country: BE (occurrence: BE)
  Receive Date: 20120424
  Receipt Date: 20131112
  Transmission Date: 20140711
  Serious: Yes (Hospitalization)
  Sender: FDA-Public Use
  Company Number: BE-TEVA-331461ISR

PATIENT
  Age: 66 Year
  Sex: Female

DRUGS (78)
  1. CDDP CISPLATIN [Suspect]
     Indication: METASTATIC GASTRIC CANCER
     Dosage: CURRENT CYCLE 1, 80 MG/M^2
     Route: 041
     Dates: start: 20120305, end: 20120305
  2. CDDP CISPLATIN [Suspect]
     Dosage: CYCLE 2 (85 MG, 1 IN 21 DAYS)
     Route: 041
     Dates: start: 20120326, end: 20120326
  3. 5 FU [Suspect]
     Indication: METASTATIC GASTRIC CANCER
     Dosage: 800 MG/M2 DAILY; CURRENT CYCLE 1, 800 MG/M^2/DAY
     Route: 041
     Dates: start: 20120305, end: 20120310
  4. 5 FU [Suspect]
     Route: 041
     Dates: start: 20120326, end: 20120331
  5. ATACAND [Concomitant]
     Indication: HYPERTENSION
     Dates: start: 20120402
  6. ORTHO-GYNEST [Concomitant]
     Indication: POSTMENOPAUSE
     Dates: start: 20110307
  7. ORTHO-GYNEST [Concomitant]
     Dates: start: 20120402
  8. OLAMINE [Concomitant]
     Indication: VITAMIN SUPPLEMENTATION
     Dates: start: 20101208
  9. NEUROBION [Concomitant]
     Indication: GASTRECTOMY
     Dates: start: 20100330
  10. BAREXAL [Concomitant]
     Indication: DIARRHOEA
     Dates: start: 20120305
  11. BAREXAL [Concomitant]
     Dates: start: 20120411
  12. IMODIUM [Concomitant]
     Indication: DIARRHOEA
     Dates: start: 20120312, end: 20120313
  13. IMODIUM [Concomitant]
     Dates: start: 20120402
  14. BICARBONATE BUCCAL = MOUTH WASH [Concomitant]
     Indication: STOMATITIS
     Route: 002
     Dates: start: 20120313
  15. BICARBONATE BUCCAL = MOUTH WASH [Concomitant]
     Dates: start: 20120402
  16. ZANTAC [Concomitant]
     Indication: DYSPEPSIA
     Dates: start: 20120312, end: 20120312
  17. ZANTAC [Concomitant]
     Dates: start: 20120601, end: 20120601
  18. CONTRAMAL [Concomitant]
     Indication: ODYNOPHAGIA
     Dates: start: 20120313, end: 20120314
  19. MOTILIUM [Concomitant]
     Indication: NAUSEA
     Dates: start: 20120311
  20. MOTILIUM [Concomitant]
     Dates: start: 20120402
  21. LITICAN [Concomitant]
     Indication: NAUSEA
     Dates: start: 20120311
  22. LITICAN [Concomitant]
     Dates: start: 20120402
  23. SYNGEL [Concomitant]
     Indication: PROPHYLAXIS
     Dates: start: 20120315, end: 20120402
  24. SYNGEL [Concomitant]
     Dates: start: 20120411, end: 20120413
  25. MS CONTIN [Concomitant]
     Indication: ODYNOPHAGIA
     Dates: start: 20120316
  26. MS CONTIN [Concomitant]
     Dates: start: 20120402
  27. MS DIRECT [Concomitant]
     Indication: ODYNOPHAGIA
     Dates: start: 20120315
  28. PRESERVISION [Concomitant]
     Indication: PROPHYLAXIS
     Dates: start: 20101001
  29. SOFTENE [Concomitant]
     Indication: CONSTIPATION PROPHYLAXIS
     Dates: start: 20120315
  30. MOVICOL [Concomitant]
     Indication: CONSTIPATION PROPHYLAXIS
     Dates: start: 20120313
  31. MAGNESIUM SULFATE [Concomitant]
     Indication: HYPOMAGNESAEMIA
     Dates: start: 20120313, end: 20120327
  32. DIFLUCAN [Concomitant]
     Indication: PROPHYLAXIS
     Dates: start: 20120312, end: 20120322
  33. CLEXANE [Concomitant]
     Indication: THROMBOSIS PROPHYLAXIS
     Dates: start: 20120312, end: 20120313
  34. TRADONAL [Concomitant]
     Indication: ODYNOPHAGIA
     Dates: start: 20120312, end: 20120315
  35. ENTEROL [Concomitant]
     Indication: DIARRHOEA
     Dates: start: 2012
  36. EMEND [Concomitant]
     Indication: PROPHYLAXIS OF NAUSEA AND VOMITING
     Dates: start: 20120305, end: 20120602
  37. ONDANSETRON [Concomitant]
     Indication: PROPHYLAXIS OF NAUSEA AND VOMITING
     Dates: start: 20120305, end: 20120531
  38. DEXAMETHASONE [Concomitant]
     Indication: PROPHYLAXIS
     Dates: start: 20120305, end: 20120531
  39. MEDROL [Concomitant]
     Indication: PROPHYLAXIS OF NAUSEA AND VOMITING
     Dates: start: 20120305
  40. LIQUID PHYSIOLOGIC [Concomitant]
     Indication: DEHYDRATION
     Dates: start: 20120402, end: 20120405
  41. LIQUID PHYSIOLOGIC [Concomitant]
     Indication: PROPHYLAXIS
     Dates: start: 20120411, end: 20120413
  42. LIQUID PHYSIOLOGIC [Concomitant]
     Dates: start: 20120531, end: 20120601
  43. PERFUSALGAM [Concomitant]
     Indication: DYSPEPSIA
     Route: 042
     Dates: start: 20120312, end: 20120312
  44. PERFUSALGAM [Concomitant]
     Indication: ABDOMINAL PAIN UPPER
     Dates: start: 20120525, end: 20120525
  45. PERFUSALGAM [Concomitant]
     Indication: PYREXIA
  46. SODIUM CHLORIDE [Concomitant]
     Indication: DEHYDRATION
     Dates: start: 20120312, end: 20120316
  47. SODIUM CHLORIDE [Concomitant]
     Indication: HYPONATRAEMIA
     Dates: start: 20120402, end: 20120405
  48. PRIMPERAN [Concomitant]
     Indication: NAUSEA
     Dates: start: 20120316
  49. EMCONCOR [Concomitant]
     Indication: HYPERTENSION
     Dates: start: 20120322, end: 20120328
  50. DAFALGAN [Concomitant]
     Indication: PYREXIA
     Dates: start: 20120328
  51. DAFALGAN [Concomitant]
     Indication: ABDOMINAL PAIN UPPER
     Dates: start: 20120402
  52. DAFALGAN [Concomitant]
     Indication: HEADACHE
  53. XYLOCAINE [Concomitant]
     Indication: STOMATITIS
     Dates: start: 20120402, end: 20120407
  54. NEXIUM [Concomitant]
     Indication: DYSPHAGIA
     Dates: start: 20120402, end: 20120405
  55. PANTOMED [Concomitant]
     Indication: DYSPEPSIA
     Dates: start: 20120406
  56. PANTOMED [Concomitant]
     Indication: NAUSEA
  57. TAZOCIN [Concomitant]
     Indication: NEUTROPENIA
     Dates: start: 20120411, end: 20120413
  58. BLOOD TRANSFUSION [Concomitant]
     Indication: ANAEMIA
     Dates: start: 20120320, end: 20120321
  59. PARACETAMOL [Concomitant]
     Indication: PROPHYLAXIS
     Dates: start: 20120314, end: 20120316
  60. PARACETAMOL [Concomitant]
     Dates: start: 20120402, end: 20120407
  61. FRAXIPARINE [Concomitant]
     Indication: THROMBOSIS PROPHYLAXIS
     Dates: start: 20120405, end: 20120406
  62. FRAXIPARINE [Concomitant]
     Dates: start: 20120412, end: 20120413
  63. FRAXIPARINE [Concomitant]
     Dates: start: 20120509, end: 20120511
  64. FRAXIPARINE [Concomitant]
     Dates: start: 20120531, end: 20120601
  65. AVELOX [Concomitant]
     Indication: COUGH
     Dates: start: 20120501, end: 20120507
  66. FURADANTIN [Concomitant]
     Indication: POLLAKIURIA
     Dates: start: 20120507, end: 20120509
  67. FURADANTIN [Concomitant]
     Indication: DYSURIA
  68. ARANESP [Concomitant]
     Indication: ANAEMIA
     Dates: start: 20120510, end: 20120510
  69. ARANESP [Concomitant]
     Dates: start: 20120604, end: 20120604
  70. CEFUROXIME [Concomitant]
     Indication: BRONCHITIS
     Dates: start: 20120514, end: 20120531
  71. ERYTHROPOIETIN [Concomitant]
     Indication: APLASTIC ANAEMIA
     Dates: start: 20120531, end: 20120531
  72. ERYTHROPOIETIN [Concomitant]
     Indication: ANAEMIA PROPHYLAXIS
     Dates: start: 20120620, end: 20120620
  73. ERYTHROPOIETIN [Concomitant]
     Dates: start: 20120703, end: 20120703
  74. ZINNAT [Concomitant]
     Indication: BRONCHITIS
     Dates: start: 20120524, end: 20120603
  75. NYSTATINE [Concomitant]
     Indication: STOMATITIS
     Dates: start: 20130509
  76. POTASSIUM CHLORIDE [Concomitant]
     Indication: HYPOKALAEMIA
     Dosage: 50 MILLIEQUIVALENTS DAILY;
     Route: 042
     Dates: start: 20120411, end: 20120601
  77. CHLOROPOTASSURIL [Concomitant]
     Indication: HYPOKALAEMIA
     Dates: start: 20120509, end: 20120511
  78. AMLOR [Concomitant]
     Indication: HYPERTENSION
     Dates: start: 20120313, end: 20120321

REACTIONS (9)
  - Hypokalaemia [Recovered/Resolved]
  - Decreased appetite [Not Recovered/Not Resolved]
  - Febrile neutropenia [Recovered/Resolved]
  - Mucosal inflammation [Recovered/Resolved]
  - Dehydration [Recovered/Resolved]
  - Diarrhoea [Unknown]
  - Eating disorder [Unknown]
  - Abdominal pain upper [Unknown]
  - Nausea [Unknown]
